FAERS Safety Report 9709377 (Version 2)
Quarter: 2013Q4

REPORT INFORMATION
  Report Type: Spontaneous
  Country: AT (occurrence: AT)
  Receive Date: 20131126
  Receipt Date: 20131126
  Transmission Date: 20140711
  Serious: Yes (Other)
  Sender: FDA-Public Use
  Company Number: AT-ROCHE-1306523

PATIENT
  Age: 36 Year
  Sex: Female
  Weight: 74 kg

DRUGS (9)
  1. HERCEPTIN [Suspect]
     Indication: BREAST CANCER
     Route: 042
     Dates: start: 20120611
  2. PERJETA [Suspect]
     Indication: BREAST CANCER
     Route: 042
     Dates: start: 20130429
  3. ABRAXANE [Suspect]
     Indication: BREAST CANCER
     Route: 042
     Dates: start: 20121030, end: 20130926
  4. DOXORUBICIN [Concomitant]
     Route: 065
     Dates: start: 20091229, end: 20100209
  5. TAMOXIFEN [Concomitant]
     Route: 065
     Dates: start: 201004, end: 20120530
  6. EXEMESTANE [Concomitant]
  7. LAPATINIB [Concomitant]
  8. XELODA [Concomitant]
  9. PACLITAXEL ALBUMIN [Concomitant]

REACTIONS (2)
  - Metastases to liver [Unknown]
  - Metastases to bone [Unknown]
